FAERS Safety Report 15215356 (Version 1)
Quarter: 2018Q3

REPORT INFORMATION
  Report Type: Report from Study
  Country: FR (occurrence: FR)
  Receive Date: 20180730
  Receipt Date: 20180730
  Transmission Date: 20181010
  Serious: Yes (Hospitalization)
  Sender: FDA-Public Use
  Company Number: FR-ROCHE-2161792

PATIENT

DRUGS (1)
  1. RITUXIMAB. [Suspect]
     Active Substance: RITUXIMAB
     Indication: ANTI-NEUTROPHIL CYTOPLASMIC ANTIBODY POSITIVE VASCULITIS
     Route: 042

REACTIONS (46)
  - Sepsis [Unknown]
  - Urinary tract infection [Unknown]
  - Colitis [Unknown]
  - Weight decreased [Unknown]
  - Renal failure [Unknown]
  - Asthma [Unknown]
  - Small intestinal obstruction [Unknown]
  - Presyncope [Unknown]
  - Inflammation [Unknown]
  - Pneumonia [Unknown]
  - Fungal disease carrier [Unknown]
  - Transient ischaemic attack [Unknown]
  - Prostatitis [Unknown]
  - Rhinitis [Unknown]
  - Colonic abscess [Unknown]
  - Viral infection [Unknown]
  - Ear infection [Unknown]
  - Influenza [Unknown]
  - Bladder cancer [Unknown]
  - Thrombophlebitis [Unknown]
  - Pain [Unknown]
  - Primary hyperthyroidism [Unknown]
  - Joint dislocation [Unknown]
  - Epistaxis [Unknown]
  - Gastroenteritis [Unknown]
  - Neutropenia [Unknown]
  - Abnormal behaviour [Unknown]
  - Fracture [Unknown]
  - Psoriasis [Unknown]
  - Impaired healing [Unknown]
  - Hepatic enzyme increased [Unknown]
  - Bronchospasm [Unknown]
  - Bronchitis [Unknown]
  - Cholecystitis [Unknown]
  - Pulmonary embolism [Unknown]
  - Acute coronary syndrome [Unknown]
  - Palpitations [Unknown]
  - Depression [Unknown]
  - Diaphragmatic paralysis [Unknown]
  - Tendon rupture [Unknown]
  - Pharyngitis [Unknown]
  - Herpes zoster [Unknown]
  - Penile cancer [Unknown]
  - Left ventricular failure [Unknown]
  - Upper gastrointestinal haemorrhage [Unknown]
  - Inguinal hernia strangulated [Unknown]
